FAERS Safety Report 8894078 (Version 1)
Quarter: 2012Q4

REPORT INFORMATION
  Report Type: 
  Country: FR (occurrence: FR)
  Receive Date: 20121108
  Receipt Date: 20121108
  Transmission Date: 20130627
  Serious: Yes (Death)
  Sender: FDA-Public Use
  Company Number: FR-ROCHE-1119943

PATIENT
  Sex: Female

DRUGS (2)
  1. XELODA [Suspect]
     Indication: BREAST CANCER
     Dosage: 3 tablets of 500 mg strength twice per day (Daily dose: 3000 mg) for 14 days every 21 days
     Route: 065
  2. ERGYDESMODIUM [Concomitant]
     Dosage: 1-2 dose capsule in half water glass
     Route: 065
     Dates: start: 20120917

REACTIONS (2)
  - Death [Fatal]
  - Incorrect dose administered [Unknown]
